FAERS Safety Report 20033405 (Version 5)
Quarter: 2021Q4

REPORT INFORMATION
  Report Type: Report from Study
  Country: CN (occurrence: None)
  Receive Date: 20211104
  Receipt Date: 20211207
  Transmission Date: 20220303
  Serious: Yes (Hospitalization)
  Sender: FDA-Public Use
  Company Number: CN-ROCHE-2935247

PATIENT
  Age: 69 Year
  Sex: Male
  Weight: 70 kg

DRUGS (10)
  1. TIRAGOLUMAB [Suspect]
     Active Substance: TIRAGOLUMAB
     Indication: Small cell lung cancer extensive stage
     Dosage: START DATE OF MOST RECENT DOSE OF STUDY DRUG PRIOR TO AE/SAE:22/SEP/2021
     Route: 042
     Dates: start: 20210721
  2. ATEZOLIZUMAB [Suspect]
     Active Substance: ATEZOLIZUMAB
     Indication: Small cell lung cancer extensive stage
     Dosage: START DATE OF MOST RECENT DOSE (1200 MG)  OF STUDY DRUG PRIOR TO AE/SAE:22/SEP/2021
     Route: 041
     Dates: start: 20210721
  3. CARBOPLATIN [Suspect]
     Active Substance: CARBOPLATIN
     Indication: Small cell lung cancer extensive stage
     Dosage: START DATE OF MOST RECENT DOSE (450 MG)  OF STUDY DRUG PRIOR TO AE/SAE:22/SEP/2021
     Route: 042
     Dates: start: 20210721
  4. ETOPOSIDE [Suspect]
     Active Substance: ETOPOSIDE
     Indication: Small cell lung cancer extensive stage
     Dosage: START DATE OF MOST RECENT DOSE (170 MG)  OF STUDY DRUG PRIOR TO AE/SAE:24/SEP/2021
     Route: 042
     Dates: start: 20210721
  5. OMEPRAZOLE [Concomitant]
     Active Substance: OMEPRAZOLE
     Indication: Abdominal pain upper
     Dates: start: 20210818
  6. APREPITANT [Concomitant]
     Active Substance: APREPITANT
     Dates: start: 20210922, end: 20210924
  7. DEXAMETHASONE SODIUM PHOSPHATE [Concomitant]
     Active Substance: DEXAMETHASONE SODIUM PHOSPHATE
     Dates: start: 20210922, end: 20210922
  8. FUROSEMIDE [Concomitant]
     Active Substance: FUROSEMIDE
     Dates: start: 20210922, end: 20210922
  9. ALMAGATE [Concomitant]
     Active Substance: ALMAGATE
     Dates: start: 20210916, end: 20210918
  10. ALMAGATE [Concomitant]
     Active Substance: ALMAGATE
     Dates: start: 20210908, end: 20211012

REACTIONS (1)
  - Pneumonia [Recovering/Resolving]

NARRATIVE: CASE EVENT DATE: 20211010
